FAERS Safety Report 4679832-0 (Version None)
Quarter: 2005Q2

REPORT INFORMATION
  Report Type: 
  Country: None (occurrence: None)
  Receive Date: 20050602
  Receipt Date: 20041108
  Transmission Date: 20051028
  Serious: No
  Sender: FDA-Public Use
  Company Number: US-GLAXOSMITHKLINE-A0533082A

PATIENT
  Age: 49 Year
  Sex: Female

DRUGS (1)
  1. AUGMENTIN XR [Suspect]
     Dosage: 1TAB TWICE PER DAY
     Route: 048
     Dates: start: 20041105, end: 20041107

REACTIONS (4)
  - DIZZINESS [None]
  - HEADACHE [None]
  - MYDRIASIS [None]
  - NAUSEA [None]
